FAERS Safety Report 10992476 (Version 2)
Quarter: 2015Q2

REPORT INFORMATION
  Report Type: Spontaneous
  Country: US (occurrence: US)
  Receive Date: 20150406
  Receipt Date: 20150514
  Transmission Date: 20150821
  Serious: Yes (Hospitalization, Other)
  Sender: FDA-Public Use
  Company Number: PHEH2015US006406

PATIENT
  Age: 62 Year
  Sex: Female
  Weight: 66.95 kg

DRUGS (8)
  1. AFINITOR [Suspect]
     Active Substance: EVEROLIMUS
     Indication: BREAST CANCER
     Dosage: 10 MG, QD
     Route: 048
     Dates: start: 20150224, end: 20150316
  2. SYNTHROID [Concomitant]
     Active Substance: LEVOTHYROXINE SODIUM
     Indication: HYPOTHYROIDISM
     Dosage: 75 UG, QD
     Route: 048
     Dates: start: 20150422
  3. NEXIUM I.V. [Concomitant]
     Active Substance: ESOMEPRAZOLE SODIUM
     Indication: PRODUCT USED FOR UNKNOWN INDICATION
     Dosage: 40 MG, QD
     Route: 048
     Dates: start: 20141003
  4. K-TAB [Concomitant]
     Active Substance: POTASSIUM CHLORIDE
     Indication: PRODUCT USED FOR UNKNOWN INDICATION
     Dosage: 1 DF, QD
     Route: 048
     Dates: start: 20150407
  5. MAGNESIUM OXIDE. [Concomitant]
     Active Substance: MAGNESIUM OXIDE
     Indication: PRODUCT USED FOR UNKNOWN INDICATION
     Dosage: 400 MG, BID
     Route: 048
     Dates: start: 20150407
  6. ZOFRAN [Concomitant]
     Active Substance: ONDANSETRON HYDROCHLORIDE
     Indication: NAUSEA
     Dosage: 8 MG, TID AS NEEDED
     Route: 048
     Dates: start: 20140422
  7. MAGIC MOUTHWASH [Concomitant]
     Active Substance: DIPHENHYDRAMINE HYDROCHLORIDE\LIDOCAINE HYDROCHLORIDE\NYSTATIN
     Indication: PRODUCT USED FOR UNKNOWN INDICATION
     Dosage: 10 ML, QID
     Route: 065
     Dates: start: 20140408
  8. AROMASIN [Concomitant]
     Active Substance: EXEMESTANE
     Indication: PRODUCT USED FOR UNKNOWN INDICATION
     Dosage: 25 MG, QD
     Route: 048
     Dates: start: 20150127

REACTIONS (27)
  - Atelectasis [Unknown]
  - Dyspnoea [Recovering/Resolving]
  - Cardiomegaly [Unknown]
  - Lymphadenopathy [Unknown]
  - Fatigue [Unknown]
  - Ascites [Unknown]
  - Dilatation ventricular [Unknown]
  - Pulmonary valve incompetence [Unknown]
  - Pericardial effusion [Unknown]
  - Pleural effusion [Unknown]
  - Right atrial dilatation [Unknown]
  - Right ventricular systolic pressure increased [Unknown]
  - Pulmonary embolism [Unknown]
  - Mitral valve incompetence [Unknown]
  - Cough [Recovered/Resolved]
  - Stomatitis [Recovered/Resolved]
  - Left ventricular dysfunction [Unknown]
  - Ejection fraction decreased [Not Recovered/Not Resolved]
  - Renal cyst [Unknown]
  - Lung consolidation [Unknown]
  - Hepatic atrophy [Unknown]
  - Left atrial dilatation [Unknown]
  - Muscle spasms [Recovered/Resolved]
  - Feeling cold [Recovered/Resolved]
  - Tricuspid valve incompetence [Unknown]
  - Bronchial wall thickening [Unknown]
  - Pulmonary oedema [Unknown]

NARRATIVE: CASE EVENT DATE: 20150309
